FAERS Safety Report 15477611 (Version 1)
Quarter: 2018Q4

REPORT INFORMATION
  Report Type: Spontaneous
  Country: US (occurrence: US)
  Receive Date: 20181001
  Receipt Date: 20181001
  Transmission Date: 20190205
  Serious: Yes (Hospitalization)
  Sender: FDA-Public Use
  Company Number: None

PATIENT
  Age: 57 Year
  Sex: Male
  Weight: 77 kg

DRUGS (2)
  1. VANCOMYCIN [Suspect]
     Active Substance: VANCOMYCIN
     Indication: OSTEOMYELITIS
     Route: 042
     Dates: start: 20180430, end: 20180513
  2. CEFEPIME [Suspect]
     Active Substance: CEFEPIME HYDROCHLORIDE
     Indication: OSTEOMYELITIS
     Route: 042
     Dates: start: 20180430, end: 20180601

REACTIONS (9)
  - Productive cough [None]
  - Vomiting [None]
  - Therapy cessation [None]
  - Tubulointerstitial nephritis [None]
  - Decreased appetite [None]
  - Asthenia [None]
  - Acute kidney injury [None]
  - Parosmia [None]
  - Osteomyelitis [None]

NARRATIVE: CASE EVENT DATE: 20180513
